FAERS Safety Report 21706827 (Version 1)
Quarter: 2022Q4

REPORT INFORMATION
  Report Type: Spontaneous
  Country: US (occurrence: US)
  Receive Date: 20221209
  Receipt Date: 20221209
  Transmission Date: 20230113
  Serious: Yes (Hospitalization)
  Sender: FDA-Public Use
  Company Number: US-ORGANON-O2212USA000042

PATIENT
  Age: 60 Year
  Sex: Female

DRUGS (2)
  1. ZOCOR [Interacting]
     Active Substance: SIMVASTATIN
     Dosage: UNK
     Route: 048
  2. GENVOYA [Interacting]
     Active Substance: COBICISTAT\ELVITEGRAVIR\EMTRICITABINE\TENOFOVIR ALAFENAMIDE FUMARATE
     Indication: HIV infection
     Dosage: UNK
     Dates: start: 2021

REACTIONS (2)
  - Drug interaction [Unknown]
  - Myopathy [Recovered/Resolved]
